FAERS Safety Report 22332681 (Version 1)
Quarter: 2023Q2

REPORT INFORMATION
  Report Type: Report from Study
  Country: US (occurrence: US)
  Receive Date: 20230517
  Receipt Date: 20230517
  Transmission Date: 20230722
  Serious: Yes (Hospitalization)
  Sender: FDA-Public Use
  Company Number: US-ABBVIE-4760376

PATIENT
  Age: 77 Year
  Sex: Female

DRUGS (3)
  1. NAVITOCLAX [Suspect]
     Active Substance: NAVITOCLAX
     Indication: Myelodysplastic syndrome
     Dates: start: 20230421, end: 20230504
  2. DECITABINE [Concomitant]
     Active Substance: DECITABINE
     Indication: Myelodysplastic syndrome
     Dates: start: 20230421, end: 20230425
  3. VENETOCLAX [Suspect]
     Active Substance: VENETOCLAX
     Indication: Myelodysplastic syndrome
     Dates: start: 20230421, end: 20230504

REACTIONS (1)
  - Febrile neutropenia [Not Recovered/Not Resolved]

NARRATIVE: CASE EVENT DATE: 20230505
